FAERS Safety Report 10006717 (Version 1)
Quarter: 2014Q1

REPORT INFORMATION
  Report Type: Spontaneous
  Country: US (occurrence: US)
  Receive Date: 20140313
  Receipt Date: 20140313
  Transmission Date: 20141002
  Serious: No
  Sender: FDA-Public Use
  Company Number: US-PFIZER INC-2014071092

PATIENT
  Age: 58 Year
  Sex: 0

DRUGS (12)
  1. NEURONTIN [Suspect]
     Dosage: UNK
  2. MELOXICAM [Suspect]
     Dosage: UNK
  3. METFORMIN HCL [Suspect]
     Dosage: UNK
  4. MORPHINE SULFATE [Suspect]
     Dosage: UNK
  5. PREDNISONE [Suspect]
     Dosage: UNK
  6. ZITHROMAX [Suspect]
     Dosage: UNK
  7. BUSPAR [Suspect]
     Dosage: UNK
  8. CECLOR [Suspect]
     Dosage: UNK
  9. PAXIL [Suspect]
     Dosage: UNK
  10. VALIUM [Suspect]
     Dosage: UNK
  11. DOXEPIN HCL [Suspect]
     Dosage: UNK
  12. HYDROXYZINE PAMOATE [Suspect]
     Dosage: UNK

REACTIONS (1)
  - Drug hypersensitivity [Unknown]
